FAERS Safety Report 9851178 (Version 1)
Quarter: 2014Q1

REPORT INFORMATION
  Report Type: Spontaneous
  Country: US (occurrence: US)
  Receive Date: 20140128
  Receipt Date: 20140128
  Transmission Date: 20141002
  Serious: No
  Sender: FDA-Public Use
  Company Number: US-SANOFI-AVENTIS-2013SA085718

PATIENT
  Sex: Male

DRUGS (10)
  1. LASIX [Suspect]
     Indication: SWELLING
     Route: 048
     Dates: start: 20130506, end: 20130729
  2. LASIX [Suspect]
     Indication: CARDIAC FAILURE
     Route: 048
     Dates: start: 20130506, end: 20130729
  3. TRAVATAN [Concomitant]
     Indication: GLAUCOMA
     Dates: start: 20130430
  4. COREG [Concomitant]
     Indication: CARDIAC FAILURE
     Route: 048
     Dates: start: 20130430
  5. MELATONIN [Concomitant]
     Indication: SLEEP DISORDER
     Route: 048
     Dates: start: 20130506
  6. MULTIVITAMINS [Concomitant]
     Indication: VITAMIN SUPPLEMENTATION
     Route: 048
     Dates: start: 20130506
  7. LACTULOSE [Concomitant]
     Indication: CONSTIPATION
     Route: 048
     Dates: start: 20130506
  8. ZAROXOLYN [Concomitant]
     Indication: FLUID RETENTION
     Route: 048
     Dates: start: 20130506
  9. POTASSIUM CHLORIDE [Concomitant]
     Indication: ELECTROLYTE SUBSTITUTION THERAPY
     Route: 048
     Dates: start: 20130506
  10. LYRICA [Concomitant]
     Indication: NEURALGIA
     Route: 048
     Dates: start: 20130506

REACTIONS (1)
  - Blood potassium increased [Unknown]
